FAERS Safety Report 10446899 (Version 1)
Quarter: 2014Q3

REPORT INFORMATION
  Report Type: Spontaneous
  Country: US (occurrence: None)
  Receive Date: 20140909
  Receipt Date: 20140909
  Transmission Date: 20150326
  Serious: Yes (Other)
  Sender: FDA-Public Use
  Company Number: 2014SUP00047

PATIENT
  Sex: Female

DRUGS (2)
  1. TROKENDI XR [Suspect]
     Active Substance: TOPIRAMATE
     Indication: CONVULSION
     Route: 048
     Dates: start: 201401
  2. TROKENDI XR [Suspect]
     Active Substance: TOPIRAMATE
     Indication: CONVULSION
     Route: 048
     Dates: start: 201401

REACTIONS (1)
  - Convulsion [None]

NARRATIVE: CASE EVENT DATE: 201401
